FAERS Safety Report 6660464-X (Version None)
Quarter: 2010Q1

REPORT INFORMATION
  Report Type: 
  Country: None (occurrence: None)
  Receive Date: 20100331
  Receipt Date: 20100325
  Transmission Date: 20100710
  Serious: Yes (Other)
  Sender: FDA-Public Use
  Company Number: SE-NOVOPROD-289489

PATIENT
  Age: 18 Year
  Sex: Male
  Weight: 56 kg

DRUGS (4)
  1. NORDITROPIN [Suspect]
     Indication: GROWTH RETARDATION
     Dosage: 2 MG, QD
     Route: 058
     Dates: start: 20050101, end: 20090605
  2. VITAMINERAL [Concomitant]
     Dosage: 1 TAB, QD
     Route: 048
     Dates: start: 20070220
  3. PIKASOL [Concomitant]
     Dosage: 2000 MG, QD
     Route: 048
     Dates: start: 20070220
  4. NIFEREX                            /00023501/ [Concomitant]
     Dosage: 100 MG, UNK
     Route: 048
     Dates: start: 20070220

REACTIONS (1)
  - COLORECTAL CANCER [None]
